FAERS Safety Report 4503350-3 (Version None)
Quarter: 2004Q4

REPORT INFORMATION
  Report Type: 
  Country: None (occurrence: None)
  Receive Date: 20041112
  Receipt Date: 20041101
  Transmission Date: 20050328
  Serious: Yes (Death)
  Sender: FDA-Public Use
  Company Number: 2004236353JP

PATIENT
  Age: 77 Year
  Sex: Female

DRUGS (2)
  1. FRAGMIN [Suspect]
     Indication: DISSEMINATED INTRAVASCULAR COAGULATION
     Dosage: 2500 U/DAY , SUBCUTANEOUS
     Route: 058
     Dates: start: 20020917
  2. MEDROL [Suspect]
     Indication: POLYARTERITIS NODOSA
     Dosage: SEE IMAGE
     Dates: start: 20020903

REACTIONS (5)
  - ANTINEUTROPHIL CYTOPLASMIC ANTIBODY INCREASED [None]
  - CYTOMEGALOVIRUS INFECTION [None]
  - DISSEMINATED INTRAVASCULAR COAGULATION [None]
  - GASTROINTESTINAL HAEMORRHAGE [None]
  - HISTIOCYTOSIS HAEMATOPHAGIC [None]
